FAERS Safety Report 8109254-1 (Version None)
Quarter: 2012Q1

REPORT INFORMATION
  Report Type: 
  Country: None (occurrence: None)
  Receive Date: 20120202
  Receipt Date: 20120105
  Transmission Date: 20120608
  Serious: No
  Sender: FDA-Public Use
  Company Number: US-AMGEN-USASP2012000581

PATIENT
  Age: 65 Year
  Sex: Male

DRUGS (1)
  1. ENBREL [Suspect]
     Indication: PSORIATIC ARTHROPATHY
     Dosage: 50 MG, QWK
     Dates: start: 20031015, end: 20110601

REACTIONS (4)
  - FOOT DEFORMITY [None]
  - PSORIATIC ARTHROPATHY [None]
  - SCAB [None]
  - MUSCULOSKELETAL STIFFNESS [None]
